FAERS Safety Report 7268421-X (Version None)
Quarter: 2011Q1

REPORT INFORMATION
  Report Type: 
  Country: None (occurrence: None)
  Receive Date: 20110201
  Receipt Date: 20110127
  Transmission Date: 20110831
  Serious: Yes (Other)
  Sender: FDA-Public Use
  Company Number: GB-PFIZER INC-2011013802

PATIENT
  Age: 51 Year
  Sex: Female

DRUGS (5)
  1. CITALOPRAM [Concomitant]
     Indication: BIPOLAR DISORDER
     Dosage: 10 MG, 1X/DAY
     Route: 048
     Dates: start: 20101222
  2. CORSODYL [Concomitant]
  3. METRONIDAZOLE [Suspect]
     Indication: TOOTH ABSCESS
     Dosage: 400 MG, 3X/DAY
     Route: 048
     Dates: start: 20101022, end: 20101230
  4. CITALOPRAM [Concomitant]
     Indication: DEPRESSION
  5. ZOPICLONE [Concomitant]
     Indication: INSOMNIA
     Dosage: 7.5 MG, 1X/DAY
     Route: 048
     Dates: start: 20101208

REACTIONS (3)
  - PSYCHOTIC DISORDER [None]
  - ANXIETY [None]
  - INSOMNIA [None]
